FAERS Safety Report 5571458-X (Version None)
Quarter: 2007Q4

REPORT INFORMATION
  Report Type: 
  Country: None (occurrence: None)
  Receive Date: 20071221
  Receipt Date: 20071031
  Transmission Date: 20080405
  Serious: Yes (Other)
  Sender: FDA-Public Use
  Company Number: US-PURDUE-USA_2007_0030227

PATIENT
  Sex: Male

DRUGS (3)
  1. XANAX [Concomitant]
     Dosage: 1 MG, QID
  2. OXYCONTIN [Suspect]
     Indication: PAIN
     Dosage: 20 MG, SEE TEXT
     Dates: start: 19990101, end: 20030213
  3. OXYCONTIN [Suspect]
     Dosage: 5 MG, QID

REACTIONS (3)
  - CARDIAC DISORDER [None]
  - CONVULSION [None]
  - SUICIDAL IDEATION [None]
